FAERS Safety Report 18147532 (Version 1)
Quarter: 2020Q3

REPORT INFORMATION
  Report Type: Spontaneous
  Country: SE (occurrence: SE)
  Receive Date: 20200814
  Receipt Date: 20200814
  Transmission Date: 20201103
  Serious: Yes (Other)
  Sender: FDA-Public Use
  Company Number: SE-TEVA-2020-SE-1813547

PATIENT
  Age: 86 Year
  Sex: Male

DRUGS (11)
  1. FURIX [Concomitant]
  2. DOXAZOSIN [Concomitant]
     Active Substance: DOXAZOSIN MESYLATE
  3. KLEXANE [Concomitant]
     Active Substance: ENOXAPARIN
  4. ALLOPURINOL. [Suspect]
     Active Substance: ALLOPURINOL
     Indication: GOUT
     Dosage: 100 MILLIGRAM DAILY;
     Route: 048
     Dates: start: 20200603, end: 20200713
  5. NATRIUMBIKARBONAT [Concomitant]
     Active Substance: SODIUM BICARBONATE
  6. SIMVASTATIN. [Concomitant]
     Active Substance: SIMVASTATIN
  7. PREDNISOLONE. [Concomitant]
     Active Substance: PREDNISOLONE
  8. BICALUTAMIDE. [Concomitant]
     Active Substance: BICALUTAMIDE
  9. AMLODIPINE [Concomitant]
     Active Substance: AMLODIPINE BESYLATE
  10. TOVIAZ [Concomitant]
     Active Substance: FESOTERODINE FUMARATE
  11. ATENOLOL. [Concomitant]
     Active Substance: ATENOLOL

REACTIONS (1)
  - Renal impairment [Unknown]

NARRATIVE: CASE EVENT DATE: 20200713
